FAERS Safety Report 8978888 (Version 1)
Quarter: 2012Q4

REPORT INFORMATION
  Report Type: 
  Country: IT (occurrence: IT)
  Receive Date: 20121220
  Receipt Date: 20121220
  Transmission Date: 20130627
  Serious: Yes (Hospitalization)
  Sender: FDA-Public Use
  Company Number: IT-WATSON-2012-22353

PATIENT
  Age: 86 Year
  Sex: Female

DRUGS (7)
  1. FUROSEMIDE (WATSON LABORATORIES) [Suspect]
     Indication: ACUTE RESPIRATORY FAILURE
     Dosage: 40 mg, daily
     Route: 042
     Dates: start: 20121027, end: 20121030
  2. OMEPRAZOLE (WATSON LABORATORIES) [Suspect]
     Indication: PROPHYLAXIS
     Dosage: 20 mg, daily
     Route: 048
     Dates: start: 20121027, end: 20121030
  3. CAPTOPRIL-HYDROCHOROTHIAZIDE [Suspect]
     Indication: HYPERTENSION
     Dosage: 1 DF, daily
     Route: 048
     Dates: start: 20121023, end: 20121031
  4. NORMIX [Suspect]
     Indication: DIARRHOEA
     Dosage: 3 DF, daily
     Route: 048
     Dates: start: 20121026, end: 20121030
  5. FOLINA                             /00024201/ [Concomitant]
     Indication: PRODUCT USED FOR UNKNOWN INDICATION
     Dosage: UNK
     Route: 065
  6. SOTALOL                            /00371502/ [Concomitant]
     Indication: PRODUCT USED FOR UNKNOWN INDICATION
     Dosage: UNK
     Route: 065
  7. ENOXAPARIN [Concomitant]
     Indication: PRODUCT USED FOR UNKNOWN INDICATION
     Dosage: UNK
     Route: 065

REACTIONS (3)
  - Monocyte count increased [Recovered/Resolved]
  - White blood cell count decreased [Recovered/Resolved]
  - Neutrophil count decreased [Recovered/Resolved]
